FAERS Safety Report 9637458 (Version 1)
Quarter: 2013Q4

REPORT INFORMATION
  Report Type: Spontaneous
  Country: US (occurrence: None)
  Receive Date: 20131018
  Receipt Date: 20131018
  Transmission Date: 20140711
  Serious: Yes (Other)
  Sender: FDA-Public Use
  Company Number: 2013P1020205

PATIENT
  Age: 86 Year
  Sex: Male

DRUGS (1)
  1. CEFUROXIME [Suspect]
     Indication: CATARACT OPERATION

REACTIONS (5)
  - Oedema [None]
  - Visual acuity reduced [None]
  - Post procedural infection [None]
  - Staphylococcal infection [None]
  - Vitrectomy [None]
